FAERS Safety Report 10698559 (Version 4)
Quarter: 2015Q1

REPORT INFORMATION
  Report Type: Spontaneous
  Country: US (occurrence: US)
  Receive Date: 20150108
  Receipt Date: 20150224
  Transmission Date: 20150721
  Serious: Yes (Other)
  Sender: FDA-Public Use
  Company Number: US-GILEAD-2015-0130462

PATIENT
  Age: 61 Year
  Sex: Female

DRUGS (2)
  1. ADCIRCA [Concomitant]
     Active Substance: TADALAFIL
  2. LETAIRIS [Suspect]
     Active Substance: AMBRISENTAN
     Indication: PRODUCT USED FOR UNKNOWN INDICATION
     Dosage: 10 MG, QD
     Route: 065
     Dates: start: 20090720

REACTIONS (7)
  - Balance disorder [Not Recovered/Not Resolved]
  - Pulmonary hypertension [Unknown]
  - Malaise [Not Recovered/Not Resolved]
  - Presyncope [Unknown]
  - Nasopharyngitis [Not Recovered/Not Resolved]
  - Pulmonary fibrosis [Unknown]
  - Dizziness [Not Recovered/Not Resolved]
